FAERS Safety Report 4523344-1 (Version None)
Quarter: 2004Q4

REPORT INFORMATION
  Report Type: 
  Country: None (occurrence: None)
  Receive Date: 20041209
  Receipt Date: 20041123
  Transmission Date: 20050328
  Serious: Yes (Hospitalization, Other)
  Sender: FDA-Public Use
  Company Number: 2004102565

PATIENT
  Age: 75 Year
  Sex: Female
  Weight: 52.1637 kg

DRUGS (6)
  1. CELEBREX [Suspect]
     Indication: ARTHRITIS
     Dosage: ORAL
     Route: 048
  2. BEXTRA [Suspect]
     Indication: ARTHRITIS
     Dosage: (2 IN 1 D), ORAL
     Route: 048
     Dates: start: 20040401, end: 20040401
  3. ROFECOXIB [Suspect]
     Indication: ILL-DEFINED DISORDER
     Dosage: (1 IN 1 D), ORAL
     Route: 048
     Dates: start: 19990101, end: 19990101
  4. MONTELUKAST (MONTELUKAST) [Concomitant]
  5. TELMISARTAN (TELMISARTAN) [Concomitant]
  6. AMLODIPINE BESYLATE [Concomitant]

REACTIONS (11)
  - ABDOMINAL DISTENSION [None]
  - BODY HEIGHT DECREASED [None]
  - GASTRIC DISORDER [None]
  - INFECTION [None]
  - LARGE INTESTINAL STRICTURE [None]
  - LARGE INTESTINAL ULCER HAEMORRHAGE [None]
  - LARGE INTESTINE PERFORATION [None]
  - OEDEMA PERIPHERAL [None]
  - OSTEOPENIA [None]
  - PAIN IN EXTREMITY [None]
  - POST PROCEDURAL COMPLICATION [None]
